FAERS Safety Report 6287208-8 (Version None)
Quarter: 2009Q3

REPORT INFORMATION
  Report Type: 
  Country: None (occurrence: None)
  Receive Date: 20090728
  Receipt Date: 20080107
  Transmission Date: 20100115
  Serious: Yes (Hospitalization)
  Sender: FDA-Public Use
  Company Number: FR-PFIZER INC-2008002546

PATIENT
  Age: 64 Year

DRUGS (6)
  1. LYRICA [Suspect]
     Dosage: 150 MG, 1X/DAY
     Route: 048
     Dates: start: 20070921, end: 20070924
  2. NORFLOXACIN [Concomitant]
  3. LASIX [Concomitant]
  4. SPIROCTAN [Concomitant]
  5. ZOLPIDEM [Concomitant]
  6. PROPRANOLOL HYDROCHLORIDE [Concomitant]

REACTIONS (1)
  - HEPATIC ENCEPHALOPATHY [None]
